FAERS Safety Report 4512877-X (Version None)
Quarter: 2004Q4

REPORT INFORMATION
  Report Type: 
  Country: None (occurrence: None)
  Receive Date: 20041119
  Receipt Date: 20041119
  Transmission Date: 20050328
  Serious: Yes (Hospitalization)
  Sender: FDA-Public Use
  Company Number: None

PATIENT
  Age: 50 Year
  Sex: Male
  Weight: 91.8 kg

DRUGS (12)
  1. CLOZAPINE [Suspect]
     Indication: SCHIZOPHRENIA, PARANOID TYPE
     Dosage: 5 MG PO BID
     Route: 048
     Dates: start: 20040728, end: 20040818
  2. BENZTROPINE MESYLATE [Concomitant]
  3. CHLORAL HYDRATE [Concomitant]
  4. CLONAZEPAM [Concomitant]
  5. DIPHENHYDRAMINE [Concomitant]
  6. DONEPEZIL HCL [Concomitant]
  7. PROLIXIN [Concomitant]
  8. GABAPENTIN [Concomitant]
  9. GEMFIBROZIL [Concomitant]
  10. PROPRANOLOL [Concomitant]
  11. RISPERDAL [Concomitant]
  12. ZOLPIDEM [Concomitant]

REACTIONS (1)
  - AGRANULOCYTOSIS [None]
